FAERS Safety Report 5734207-8 (Version None)
Quarter: 2008Q2

REPORT INFORMATION
  Report Type: 
  Country: None (occurrence: None)
  Receive Date: 20080510
  Receipt Date: 20080430
  Transmission Date: 20081010
  Serious: Yes (Hospitalization)
  Sender: FDA-Public Use
  Company Number: PHHY2008NZ06960

PATIENT
  Age: 55 Year
  Sex: Male

DRUGS (3)
  1. CLOZARIL [Suspect]
     Indication: SCHIZOPHRENIA
     Dosage: 250 MG DAILY
     Route: 048
     Dates: start: 20080130
  2. MADOPAR [Concomitant]
  3. SINEMET [Concomitant]

REACTIONS (9)
  - ACTIVITIES OF DAILY LIVING IMPAIRED [None]
  - BRONCHOPNEUMONIA [None]
  - COLECTOMY [None]
  - CONSTIPATION [None]
  - HYPOTENSION [None]
  - LARGE INTESTINE PERFORATION [None]
  - RECTAL HAEMORRHAGE [None]
  - TACHYCARDIA [None]
  - X-RAY ABNORMAL [None]
